FAERS Safety Report 10643159 (Version 1)
Quarter: 2014Q4

REPORT INFORMATION
  Report Type: Spontaneous
  Country: US (occurrence: None)
  Receive Date: 20141121
  Receipt Date: 20141121
  Transmission Date: 20150529
  Serious: No
  Sender: FDA-Public Use
  Company Number: 163-10004-14091954

PATIENT
  Sex: Female
  Weight: 58.97 kg

DRUGS (4)
  1. ETODOLAC. [Concomitant]
     Active Substance: ETODOLAC
  2. OTEZLA [Suspect]
     Active Substance: APREMILAST
     Indication: PSORIATIC ARTHROPATHY
     Dosage: NOT PROVIDED
     Route: 048
     Dates: start: 201407
  3. ABREVA (DOCOSANOL) [Concomitant]
  4. CIPROFLOXACIN. [Concomitant]
     Active Substance: CIPROFLOXACIN

REACTIONS (1)
  - Sinusitis [None]

NARRATIVE: CASE EVENT DATE: 20140828
